FAERS Safety Report 15950888 (Version 1)
Quarter: 2019Q1

REPORT INFORMATION
  Report Type: Spontaneous
  Country: CN (occurrence: CN)
  Receive Date: 20190212
  Receipt Date: 20190212
  Transmission Date: 20190417
  Serious: Yes (Other)
  Sender: FDA-Public Use
  Company Number: CN-MYLANLABS-2019M1010713

PATIENT
  Age: 64 Year
  Sex: Female

DRUGS (5)
  1. METHYLPREDNISOLONE. [Suspect]
     Active Substance: METHYLPREDNISOLONE
     Indication: SEROUS RETINAL DETACHMENT
     Route: 050
  2. METHYLPREDNISOLONE. [Suspect]
     Active Substance: METHYLPREDNISOLONE
     Indication: UVEITIS
     Dosage: PULSE THERAPY
     Route: 042
  3. NIVOLUMAB [Suspect]
     Active Substance: NIVOLUMAB
     Indication: RENAL CELL CARCINOMA
     Route: 042
  4. PREDNISONE. [Suspect]
     Active Substance: PREDNISONE
     Indication: SEROUS RETINAL DETACHMENT
     Dosage: DOSE TAPERED TO 5MG/DAY OVER 2 MONTHS
     Route: 048
  5. PREDNISOLONE. [Suspect]
     Active Substance: PREDNISOLONE
     Indication: SEROUS RETINAL DETACHMENT
     Route: 061

REACTIONS (4)
  - Condition aggravated [Unknown]
  - Metastases to liver [Unknown]
  - Cataract [Recovered/Resolved]
  - Drug ineffective [Unknown]
